FAERS Safety Report 22631686 (Version 2)
Quarter: 2023Q2

REPORT INFORMATION
  Report Type: Spontaneous
  Country: US (occurrence: US)
  Receive Date: 20230623
  Receipt Date: 20230623
  Transmission Date: 20230721
  Serious: Yes (Hospitalization, Other)
  Sender: FDA-Public Use
  Company Number: US-002147023-NVSC2023US135183

PATIENT
  Sex: Male

DRUGS (1)
  1. KYMRIAH [Suspect]
     Active Substance: TISAGENLECLEUCEL
     Indication: Acute lymphocytic leukaemia
     Dosage: 2.3 DOSAGE FORM, ONCE/SINGLE (CAR POSITIVE VIABLE T CELLS, GT 50 KG)
     Route: 042
     Dates: start: 20230601, end: 20230601

REACTIONS (5)
  - Cytokine release syndrome [Recovering/Resolving]
  - Swelling [Recovering/Resolving]
  - Periorbital swelling [Recovering/Resolving]
  - Inflammatory marker increased [Recovering/Resolving]
  - Pyrexia [Recovering/Resolving]

NARRATIVE: CASE EVENT DATE: 20230601
